FAERS Safety Report 8498931 (Version 3)
Quarter: 2012Q4

REPORT INFORMATION
  Report Type: 
  Country: US (occurrence: US)
  Receive Date: 20120409
  Receipt Date: 20121003
  Transmission Date: 20130627
  Serious: Yes (Hospitalization)
  Sender: FDA-Public Use
  Company Number: US-ELI_LILLY_AND_COMPANY-US201203009208

PATIENT
  Age: 75 Year
  Sex: Female
  Weight: 73.47 kg

DRUGS (16)
  1. FORTEO [Suspect]
     Indication: OSTEOPOROSIS
     Dosage: 20 ug, qd
     Dates: start: 2011, end: 201204
  2. FORTEO [Suspect]
     Dosage: 20 ug, qd
     Dates: start: 201205
  3. AMLODIPINE [Concomitant]
  4. ASPIRIN [Concomitant]
  5. ANDOL [Concomitant]
  6. CHOLECALCIFEROL [Concomitant]
  7. CLOPIDOGREL [Concomitant]
  8. DILTIAZEM [Concomitant]
  9. FLUTICASONE [Concomitant]
  10. FUROSEMIDE [Concomitant]
  11. LISINOPRIL [Concomitant]
  12. METHYL SALICYLATE [Concomitant]
  13. SIMVASTATIN [Concomitant]
  14. SPIRIVA [Concomitant]
  15. ADVAIR [Concomitant]
  16. VESICARE [Concomitant]

REACTIONS (3)
  - Atrial fibrillation [Recovered/Resolved]
  - Heart valve incompetence [Unknown]
  - Dry mouth [Unknown]
